FAERS Safety Report 10900697 (Version 1)
Quarter: 2015Q1

REPORT INFORMATION
  Report Type: Spontaneous
  Country: US (occurrence: None)
  Receive Date: 20150303
  Receipt Date: 20150303
  Transmission Date: 20150721
  Serious: Yes (Other)
  Sender: FDA-Public Use
  Company Number: None

PATIENT
  Age: 66 Year
  Sex: Female

DRUGS (6)
  1. PRAMIPEXOLE [Concomitant]
     Active Substance: PRAMIPEXOLE
  2. SUVOREXANT. [Suspect]
     Active Substance: SUVOREXANT
     Indication: INSOMNIA
     Dosage: 1 PILL QHS/BEDTIME
     Route: 048
     Dates: start: 20150221, end: 20150226
  3. EFFEXOR XR [Concomitant]
     Active Substance: VENLAFAXINE HYDROCHLORIDE
  4. LEVOTHYROXINE [Concomitant]
     Active Substance: LEVOTHYROXINE
  5. WELLBUTRIN SR [Concomitant]
     Active Substance: BUPROPION HYDROCHLORIDE
  6. METOLAZONE. [Concomitant]
     Active Substance: METOLAZONE

REACTIONS (5)
  - Pruritus [None]
  - Eye swelling [None]
  - Swelling face [None]
  - Erythema [None]
  - Lip swelling [None]

NARRATIVE: CASE EVENT DATE: 20150302
